FAERS Safety Report 5123148-5 (Version None)
Quarter: 2006Q4

REPORT INFORMATION
  Report Type: 
  Country: None (occurrence: None)
  Receive Date: 20061005
  Receipt Date: 20060922
  Transmission Date: 20070319
  Serious: Yes (Other)
  Sender: FDA-Public Use
  Company Number: FABR-11609

PATIENT
  Age: 35 Year
  Sex: Male
  Weight: 84.2 kg

DRUGS (7)
  1. FABRAZYME [Suspect]
     Indication: FABRY'S DISEASE
     Dosage: 85 MG Q2WKS IV
     Route: 042
     Dates: start: 20051029
  2. TYLENOL [Concomitant]
  3. LASIX [Concomitant]
  4. LISINOPRIL [Concomitant]
  5. LIPITOR [Concomitant]
  6. IRON [Concomitant]
  7. NEURONTIN [Concomitant]

REACTIONS (7)
  - CONDITION AGGRAVATED [None]
  - DIALYSIS [None]
  - HAEMODIALYSIS [None]
  - HYPONATRAEMIA [None]
  - OEDEMA PERIPHERAL [None]
  - PERITONEAL DIALYSIS [None]
  - RENAL IMPAIRMENT [None]
